FAERS Safety Report 19677884 (Version 3)
Quarter: 2021Q3

REPORT INFORMATION
  Report Type: Report from Study
  Country: KW (occurrence: KW)
  Receive Date: 20210809
  Receipt Date: 20210914
  Transmission Date: 20211014
  Serious: Yes (Hospitalization, Other)
  Sender: FDA-Public Use
  Company Number: NVSC2019KW067604

PATIENT
  Age: 40 Year
  Sex: Male

DRUGS (2)
  1. TASIGNA [Suspect]
     Active Substance: NILOTINIB
     Indication: CHRONIC MYELOID LEUKAEMIA
     Dosage: 400 MG, BID
     Route: 048
     Dates: start: 20190728
  2. TASIGNA [Suspect]
     Active Substance: NILOTINIB
     Dosage: 200 MG
     Route: 065

REACTIONS (16)
  - COVID-19 [Recovered/Resolved]
  - Saliva altered [Recovered/Resolved]
  - Nasal congestion [Recovered/Resolved]
  - Asthenia [Recovered/Resolved]
  - Fatigue [Recovered/Resolved]
  - Anosmia [Recovered/Resolved]
  - Renal impairment [Unknown]
  - Dyspnoea [Recovered/Resolved]
  - Pyrexia [Recovered/Resolved]
  - Ageusia [Recovered/Resolved]
  - Pneumonitis [Recovered/Resolved]
  - Anaemia [Not Recovered/Not Resolved]
  - Hepatic function abnormal [Recovering/Resolving]
  - Gingival bleeding [Recovered/Resolved]
  - Renal pain [Not Recovered/Not Resolved]
  - Hepatic steatosis [Not Recovered/Not Resolved]

NARRATIVE: CASE EVENT DATE: 201911
